FAERS Safety Report 8943822 (Version 1)
Quarter: 2012Q4

REPORT INFORMATION
  Report Type: 
  Country: IT (occurrence: IT)
  Receive Date: 20121204
  Receipt Date: 20121204
  Transmission Date: 20130627
  Serious: Yes (Hospitalization, Other)
  Sender: FDA-Public Use
  Company Number: IT-PFIZER INC-2012270364

PATIENT
  Age: 49 Year
  Sex: Female

DRUGS (9)
  1. AURANTIN [Suspect]
     Indication: PARTIAL EPILEPSY
     Dosage: 1000 mg, single
     Route: 042
     Dates: start: 20121021, end: 20121021
  2. TEGRETOL [Suspect]
     Indication: EPILEPSY, UNSPECIFIED
     Dosage: 800 mg, 1x/day
     Route: 048
     Dates: start: 20040101, end: 20121022
  3. TOPAMAX [Concomitant]
     Dosage: 50 mg, UNK
  4. RIVOTRIL [Concomitant]
     Dosage: 15 drops
     Route: 048
  5. TORVAST [Concomitant]
     Dosage: 40 mg, UNK
     Route: 048
  6. DILTIAZEM HYDROCHLORIDE [Concomitant]
     Dosage: 240 mg, UNK
     Route: 048
  7. ACETYLSALICYLIC ACID [Concomitant]
     Dosage: 100 mg, UNK
     Route: 048
  8. ESOMEPRAZOLE SODIUM [Concomitant]
     Dosage: UNK
  9. RAMIPRIL [Concomitant]
     Dosage: 10 mg, UNK
     Route: 048

REACTIONS (1)
  - Stevens-Johnson syndrome [Not Recovered/Not Resolved]
